FAERS Safety Report 15514726 (Version 2)
Quarter: 2018Q4

REPORT INFORMATION
  Report Type: Spontaneous
  Country: NL (occurrence: NL)
  Receive Date: 20181016
  Receipt Date: 20181221
  Transmission Date: 20190205
  Serious: Yes (Death, Hospitalization)
  Sender: FDA-Public Use
  Company Number: PHHY2018NL127396

PATIENT

DRUGS (5)
  1. 5-FLUOROURACIL [Suspect]
     Active Substance: FLUOROURACIL
     Indication: COLORECTAL CANCER
     Dosage: (DATE OF LAST DOSE: 18 MAY 2018)
     Route: 065
     Dates: end: 20180518
  2. IRINOTECAN [Suspect]
     Active Substance: IRINOTECAN
     Indication: COLORECTAL CANCER
     Dosage: (DATE OF LAST DOSE: 17 MAY 2018)
     Route: 065
     Dates: end: 20180517
  3. OXALIPLATIN. [Suspect]
     Active Substance: OXALIPLATIN
     Indication: COLORECTAL CANCER
     Dosage: (DATE OF LAST DOSE: 17 MAY 2018)
     Route: 065
     Dates: end: 20180517
  4. LEUCOVORIN. [Suspect]
     Active Substance: LEUCOVORIN
     Indication: COLORECTAL CANCER
     Dosage: DATE OF LAST DOSE : 17 MAY 2018
     Route: 065
  5. BEVACIZUMAB. [Suspect]
     Active Substance: BEVACIZUMAB
     Indication: COLORECTAL CANCER
     Dosage: (DATE OF LAST DOSE: 17 MAY 2018)
     Route: 065
     Dates: end: 20180517

REACTIONS (4)
  - Diarrhoea [Recovered/Resolved]
  - Ileus [Recovered/Resolved]
  - Sepsis [Fatal]
  - Anaemia [Recovered/Resolved]

NARRATIVE: CASE EVENT DATE: 20180524
